FAERS Safety Report 8951884 (Version 1)
Quarter: 2012Q4

REPORT INFORMATION
  Report Type: Report from Study
  Country: JP (occurrence: JP)
  Receive Date: 20121204
  Receipt Date: 20121204
  Transmission Date: 20130627
  Serious: Yes (Hospitalization)
  Sender: FDA-Public Use
  Company Number: JP-BAUSCH-2012BL004216

PATIENT
  Age: 82 Year
  Sex: Female

DRUGS (2)
  1. FLUOCINOLONE ACETONIDE INTRAVITREAL IMPLANT (0.5 MG) [Suspect]
     Indication: CHOROIDITIS
     Dosage: Left eye
     Route: 047
     Dates: start: 20070619
  2. FLUOCINOLONE ACETONIDE INTRAVITREAL IMPLANT (0.5 MG) [Suspect]
     Dosage: Right eye
     Route: 047
     Dates: start: 20070925, end: 20120629

REACTIONS (3)
  - Device dislocation [Recovered/Resolved]
  - Lymphoma [Not Recovered/Not Resolved]
  - Vitreous opacities [Recovered/Resolved]
